FAERS Safety Report 7775021-1 (Version None)
Quarter: 2011Q3

REPORT INFORMATION
  Report Type: 
  Country: None (occurrence: None)
  Receive Date: 20110923
  Receipt Date: 20110920
  Transmission Date: 20111222
  Serious: Yes (Hospitalization, Other)
  Sender: FDA-Public Use
  Company Number: GR-ABBOTT-11P-066-0856530-00

PATIENT
  Age: 83 Year
  Sex: Male

DRUGS (6)
  1. RAMIPRIL [Concomitant]
     Indication: HYPERTENSION
     Route: 048
     Dates: start: 20091019
  2. MIRCERA [Concomitant]
     Indication: RENAL FAILURE CHRONIC
     Dosage: 100 EVERY MONTH
     Route: 058
     Dates: start: 20100322
  3. MONOSORDIL [Concomitant]
     Indication: CORONARY ARTERY DISEASE
     Route: 048
     Dates: start: 20091019
  4. ISCOR [Concomitant]
     Indication: DYSLIPIDAEMIA
     Route: 048
     Dates: start: 20091019
  5. LASIX [Concomitant]
     Indication: HYPERTENSION
     Dosage: 500 1/4  ONCE DAILY
     Route: 048
     Dates: start: 20091019
  6. ZEMPLAR [Suspect]
     Indication: HYPERPARATHYROIDISM SECONDARY
     Route: 048
     Dates: start: 20090909, end: 20110804

REACTIONS (9)
  - DECREASED APPETITE [None]
  - CONFUSIONAL STATE [None]
  - EXTRAPYRAMIDAL DISORDER [None]
  - CEREBRAL MICROANGIOPATHY [None]
  - UNEVALUABLE EVENT [None]
  - FLUID INTAKE REDUCED [None]
  - CARDIAC FAILURE [None]
  - URINARY TRACT INFECTION [None]
  - PYREXIA [None]
